FAERS Safety Report 4435244-6 (Version None)
Quarter: 2004Q3

REPORT INFORMATION
  Report Type: 
  Country: None (occurrence: None)
  Receive Date: 20040827
  Receipt Date: 20040816
  Transmission Date: 20050211
  Serious: Yes (Hospitalization)
  Sender: FDA-Public Use
  Company Number: JP-GLAXOSMITHKLINE-B0343102A

PATIENT
  Age: 30 Year
  Sex: Female

DRUGS (3)
  1. PAXIL [Suspect]
     Route: 048
  2. DEPAS [Suspect]
     Route: 048
  3. LENDORM [Suspect]
     Route: 048

REACTIONS (5)
  - ALANINE AMINOTRANSFERASE INCREASED [None]
  - ASPARTATE AMINOTRANSFERASE [None]
  - BLOOD ALKALINE PHOSPHATASE [None]
  - GAMMA-GLUTAMYLTRANSFERASE [None]
  - LIVER DISORDER [None]
